FAERS Safety Report 9614467 (Version 1)
Quarter: 2013Q4

REPORT INFORMATION
  Report Type: Spontaneous
  Country: US (occurrence: None)
  Receive Date: 20131009
  Receipt Date: 20131009
  Transmission Date: 20140711
  Serious: No
  Sender: FDA-Public Use
  Company Number: None

PATIENT
  Age: 34 Year
  Sex: Male

DRUGS (2)
  1. IBUPROFEN [Suspect]
     Indication: PAIN
     Dosage: UNKNOWN?^ALL DURING TEEN YEARS^
     Route: 048
  2. IBUPROFEN [Suspect]
     Indication: INSOMNIA
     Dosage: UNKNOWN?^ALL DURING TEEN YEARS^
     Route: 048

REACTIONS (2)
  - Insomnia [None]
  - Gastric ulcer [None]
